FAERS Safety Report 12479761 (Version 1)
Quarter: 2016Q2

REPORT INFORMATION
  Report Type: Spontaneous
  Country: US (occurrence: None)
  Receive Date: 20160617
  Receipt Date: 20160617
  Transmission Date: 20160815
  Serious: No
  Sender: FDA-Public Use
  Company Number: None

PATIENT
  Age: 68 Year
  Sex: Female

DRUGS (1)
  1. HUMIRA [Suspect]
     Active Substance: ADALIMUMAB
     Indication: PSORIATIC ARTHROPATHY
     Route: 058
     Dates: start: 201605, end: 20160615

REACTIONS (7)
  - Skin exfoliation [None]
  - Dry skin [None]
  - Pruritus [None]
  - Skin reaction [None]
  - Hypersensitivity [None]
  - Headache [None]
  - Rash macular [None]

NARRATIVE: CASE EVENT DATE: 201605
